FAERS Safety Report 6838588-3 (Version None)
Quarter: 2010Q3

REPORT INFORMATION
  Report Type: 
  Country: None (occurrence: None)
  Receive Date: 20100713
  Receipt Date: 20070614
  Transmission Date: 20110219
  Serious: No
  Sender: FDA-Public Use
  Company Number: US-PFIZER INC-2007051176

PATIENT
  Sex: Female
  Weight: 41.818 kg

DRUGS (2)
  1. CHANTIX [Suspect]
     Indication: SMOKING CESSATION THERAPY
     Route: 048
     Dates: start: 20070605
  2. ADVAIR DISKUS 100/50 [Suspect]
     Route: 055
     Dates: start: 20070605, end: 20070613

REACTIONS (2)
  - FATIGUE [None]
  - NAUSEA [None]
